FAERS Safety Report 11216188 (Version 2)
Quarter: 2015Q3

REPORT INFORMATION
  Report Type: Report from Study
  Country: CN (occurrence: CN)
  Receive Date: 20150624
  Receipt Date: 20150710
  Transmission Date: 20151125
  Serious: Yes (Hospitalization)
  Sender: FDA-Public Use
  Company Number: CN-ASTRAZENECA-2015SE59793

PATIENT
  Age: 18652 Day
  Sex: Male

DRUGS (5)
  1. PACLITAXEL. [Suspect]
     Active Substance: PACLITAXEL
     Indication: GASTRIC CANCER
     Dosage: 80 MG/M2 ON DAYS 1, 8 AND 15 OF A 28 DAY CYCLE
     Route: 042
     Dates: start: 20150702, end: 20150702
  2. PACLITAXEL. [Suspect]
     Active Substance: PACLITAXEL
     Indication: GASTRIC CANCER
     Dosage: 80 MG/M2 ON DAYS 1, 8 AND 15 OF A 28 DAY CYCLE
     Route: 042
     Dates: start: 20150603, end: 20150603
  3. OLAPARIB [Suspect]
     Active Substance: OLAPARIB
     Indication: GASTRIC CANCER
     Route: 048
     Dates: start: 20150603, end: 20150615
  4. STUDY PROCEDURE [Suspect]
     Active Substance: INVESTIGATIONAL PRODUCT
  5. OLAPARIB [Suspect]
     Active Substance: OLAPARIB
     Indication: GASTRIC CANCER
     Route: 048
     Dates: start: 20150620

REACTIONS (1)
  - Bone marrow failure [Recovered/Resolved]

NARRATIVE: CASE EVENT DATE: 20150610
